FAERS Safety Report 7488879-0 (Version None)
Quarter: 2011Q2

REPORT INFORMATION
  Report Type: 
  Country: None (occurrence: None)
  Receive Date: 20110518
  Receipt Date: 20110510
  Transmission Date: 20111010
  Serious: Yes (Other)
  Sender: FDA-Public Use
  Company Number: PHHY2011JP38844

PATIENT
  Age: 68 Year
  Sex: Male

DRUGS (7)
  1. MITOXANTRONE [Suspect]
     Dosage: 8 MG/M2, QD, X 3 DAYS
  2. RADIOTHERAPY [Suspect]
     Dosage: 4 GY, UNK
  3. FLUDARABINE PHOSPHATE [Suspect]
     Dates: start: 20091201
  4. GRANULOCYTE COLONY STIMULATING FACTOR [Suspect]
  5. DAUNORUBICIN HCL [Suspect]
     Dosage: 50 MG/M2, QD X 5 DAYS
  6. IDARUBICIN HCL [Suspect]
     Dosage: 12 MG/M2, QD X 3 DAYS
  7. CYTARABINE [Suspect]
     Dosage: 100 MG/M2, QD X 7 DAYS

REACTIONS (5)
  - PYREXIA [None]
  - DISSEMINATED INTRAVASCULAR COAGULATION [None]
  - ENGRAFTMENT SYNDROME [None]
  - NON-CARDIOGENIC PULMONARY OEDEMA [None]
  - WEIGHT INCREASED [None]
